FAERS Safety Report 18730967 (Version 2)
Quarter: 2021Q1

REPORT INFORMATION
  Report Type: Spontaneous
  Country: US (occurrence: US)
  Receive Date: 20210112
  Receipt Date: 20210204
  Transmission Date: 20210419
  Serious: Yes (Death, Hospitalization)
  Sender: FDA-Public Use
  Company Number: US-TEVA-2020-US-1865185

PATIENT
  Age: 42 Year
  Sex: Male

DRUGS (11)
  1. PEGFILGRASTIM [Suspect]
     Active Substance: PEGFILGRASTIM
     Indication: ACUTE MYELOID LEUKAEMIA
     Route: 065
  2. FILGRASTIM [Suspect]
     Active Substance: FILGRASTIM
     Indication: ACUTE MYELOID LEUKAEMIA
     Dosage: AS A PART OF CLAG?M REGIMEN
     Route: 065
     Dates: start: 201712
  3. FILGRASTIM [Suspect]
     Active Substance: FILGRASTIM
     Indication: CENTRAL NERVOUS SYSTEM LEUKAEMIA
  4. CYTARABINE. [Suspect]
     Active Substance: CYTARABINE
     Indication: ACUTE MYELOID LEUKAEMIA
     Dosage: 2 G/M2; AS A PART OF CLAG?M REGIMEN; SAME DOSE IN FEB 2018
     Route: 065
     Dates: start: 201712
  5. MITOXANTRONE [Concomitant]
     Active Substance: MITOXANTRONE HYDROCHLORIDE
     Indication: ACUTE MYELOID LEUKAEMIA
     Dosage: 10 G/M2; AS A PART OF CLAG?M REGIMEN
     Route: 065
     Dates: start: 201712
  6. CYTARABINE. [Suspect]
     Active Substance: CYTARABINE
     Indication: CENTRAL NERVOUS SYSTEM LEUKAEMIA
     Dosage: 3 G/M2 IN JAN 2018 AND MAR 2018
     Route: 065
     Dates: start: 2018
  7. PEGFILGRASTIM [Suspect]
     Active Substance: PEGFILGRASTIM
     Indication: CENTRAL NERVOUS SYSTEM LEUKAEMIA
  8. CLADRIBINE. [Concomitant]
     Active Substance: CLADRIBINE
     Indication: ACUTE MYELOID LEUKAEMIA
     Dosage: 5 G/M2; AS A PART OF CLAG?M REGIMEN
     Route: 065
     Dates: start: 201712
  9. CYTARABINE. [Suspect]
     Active Substance: CYTARABINE
     Indication: LANGERHANS CELL SARCOMA
     Dosage: 100 MG/M2 DAILY; ADMINISTERED EVERY 4 WEEKS; WHICH WAS LATER ADJUSTED TO EVERY 2 WEEKS; THE ADR DYSP
     Route: 042
     Dates: start: 201705
  10. CLADRIBINE. [Concomitant]
     Active Substance: CLADRIBINE
     Indication: CENTRAL NERVOUS SYSTEM LEUKAEMIA
  11. MITOXANTRONE [Concomitant]
     Active Substance: MITOXANTRONE HYDROCHLORIDE
     Indication: CENTRAL NERVOUS SYSTEM LEUKAEMIA

REACTIONS (2)
  - Myelosuppression [Unknown]
  - Diplopia [Unknown]

NARRATIVE: CASE EVENT DATE: 201710
